FAERS Safety Report 4813932-7 (Version None)
Quarter: 2005Q4

REPORT INFORMATION
  Report Type: 
  Country: None (occurrence: None)
  Receive Date: 20051028
  Receipt Date: 20040923
  Transmission Date: 20060501
  Serious: No
  Sender: FDA-Public Use
  Company Number: US-GLAXOSMITHKLINE-A0527102A

PATIENT
  Sex: Female

DRUGS (3)
  1. SEREVENT [Suspect]
     Indication: ASTHMA
     Route: 055
  2. ALBUTEROL [Concomitant]
  3. MAXAIR [Concomitant]

REACTIONS (4)
  - DRUG INEFFECTIVE [None]
  - MALAISE [None]
  - RESPIRATORY TRACT CONGESTION [None]
  - SUFFOCATION FEELING [None]
